FAERS Safety Report 11846010 (Version 2)
Quarter: 2015Q4

REPORT INFORMATION
  Report Type: Spontaneous
  Country: US (occurrence: US)
  Receive Date: 20151217
  Receipt Date: 20151218
  Transmission Date: 20160305
  Serious: Yes (Other)
  Sender: FDA-Public Use
  Company Number: US-LUNDBECK-DKLU2007501

PATIENT
  Age: 73 Year
  Sex: Female

DRUGS (3)
  1. NORTHERA [Suspect]
     Active Substance: DROXIDOPA
     Route: 065
     Dates: start: 20151207
  2. NORTHERA [Suspect]
     Active Substance: DROXIDOPA
     Route: 065
  3. NORTHERA [Suspect]
     Active Substance: DROXIDOPA
     Indication: PARKINSONISM
     Dosage: TITRATED UP TO 400 MG
     Route: 065
     Dates: start: 20151125, end: 20151206

REACTIONS (8)
  - Hypotension [Unknown]
  - Headache [Not Recovered/Not Resolved]
  - Dysstasia [Recovering/Resolving]
  - Abasia [Recovering/Resolving]
  - Dysarthria [Recovered/Resolved]
  - Dizziness [Unknown]
  - Drug ineffective [Unknown]
  - Muscular weakness [Unknown]

NARRATIVE: CASE EVENT DATE: 20151130
